FAERS Safety Report 21365418 (Version 11)
Quarter: 2023Q1

REPORT INFORMATION
  Report Type: Spontaneous
  Country: US (occurrence: US)
  Receive Date: 20220922
  Receipt Date: 20230118
  Transmission Date: 20230418
  Serious: No
  Sender: FDA-Public Use
  Company Number: US-PFIZER INC-PV202200062398

PATIENT
  Age: 80 Year
  Sex: Female

DRUGS (5)
  1. EUCRISA [Suspect]
     Active Substance: CRISABOROLE
     Indication: Eczema
     Dosage: 1-2X/DAY AS NEEDED (100G TUBE)
     Route: 061
  2. EUCRISA [Suspect]
     Active Substance: CRISABOROLE
     Indication: Rash
     Dosage: UNK, AS NEEDED (THIN LAYER 1-2 TIMES A DAY)
  3. EUCRISA [Suspect]
     Active Substance: CRISABOROLE
     Dosage: UNK, ALTERNATING WITH STEROID
  4. EUCRISA [Suspect]
     Active Substance: CRISABOROLE
     Dosage: THIN LAYER 1-2 TIMES A DAY AS NEEDED TO RASHY SKIN WHEN NOT USING STEROID
  5. EUCRISA [Suspect]
     Active Substance: CRISABOROLE
     Dosage: UNK (EUCRISA 2 WEEKS AND THEN SWITCH TO STEROID AND THEN GO BACK TO THE EUCRISA)

REACTIONS (6)
  - Off label use [Unknown]
  - Confusional state [Unknown]
  - Blood cholesterol abnormal [Unknown]
  - Pruritus [Unknown]
  - Skin disorder [Unknown]
  - Malaise [Unknown]
